FAERS Safety Report 9456441 (Version 1)
Quarter: 2013Q3

REPORT INFORMATION
  Report Type: Spontaneous
  Country: NL (occurrence: None)
  Receive Date: 20130809
  Receipt Date: 20130809
  Transmission Date: 20140515
  Serious: Yes (Other)
  Sender: FDA-Public Use
  Company Number: FK201302976

PATIENT
  Sex: Female

DRUGS (2)
  1. METHYLPREDNISOLONE [Suspect]
     Indication: MULTIPLE SCLEROSIS RELAPSE
     Route: 042
     Dates: start: 2008
  2. METHYLPREDNISOLONE [Suspect]
     Indication: MULTIPLE SCLEROSIS
     Route: 042
     Dates: start: 2008

REACTIONS (2)
  - Hepatitis toxic [None]
  - Hepatic steatosis [None]
